FAERS Safety Report 13306222 (Version 2)
Quarter: 2017Q1

REPORT INFORMATION
  Report Type: Report from Study
  Country: US (occurrence: US)
  Receive Date: 20170308
  Receipt Date: 20170320
  Transmission Date: 20170428
  Serious: Yes (Other)
  Sender: FDA-Public Use
  Company Number: US-UCBSA-2016041777

PATIENT
  Sex: Female

DRUGS (4)
  1. LEVETIRACETAM. [Suspect]
     Active Substance: LEVETIRACETAM
     Dosage: 3 PILLS A DAY
  2. LEVETIRACETAM. [Suspect]
     Active Substance: LEVETIRACETAM
     Indication: GENERALISED TONIC-CLONIC SEIZURE
     Dosage: 2 PILLS A DAY
  3. LEVETIRACETAM. [Suspect]
     Active Substance: LEVETIRACETAM
     Dosage: 2 PILLS DAILY
  4. LEVETIRACETAM. [Suspect]
     Active Substance: LEVETIRACETAM
     Dosage: 1 DF, EV 2 DAYS (QOD) (1 PILL EVERY OTHER NIGHT)

REACTIONS (11)
  - Mental disorder [Unknown]
  - Unevaluable event [Unknown]
  - Intentional product misuse [Unknown]
  - Impaired driving ability [Unknown]
  - Adverse drug reaction [Unknown]
  - Extra dose administered [Unknown]
  - Adverse reaction [Unknown]
  - Loss of employment [Unknown]
  - Feeling abnormal [Unknown]
  - Panic reaction [Unknown]
  - Generalised tonic-clonic seizure [Unknown]
